FAERS Safety Report 9703330 (Version 1)
Quarter: 2013Q4

REPORT INFORMATION
  Report Type: Other
  Country: GB (occurrence: GB)
  Receive Date: 20131122
  Receipt Date: 20131122
  Transmission Date: 20140711
  Serious: Yes (Hospitalization)
  Sender: FDA-Public Use
  Company Number: GB-SUN PHARMACEUTICAL INDUSTRIES LTD-2013SUN05029

PATIENT
  Age: 69 Year
  Sex: Female
  Weight: 66.2 kg

DRUGS (11)
  1. CARBOPLATIN 10 MG/ML CONCENTRATE FOR SOLUTION FOR INFUSION [Suspect]
     Indication: BREAST CANCER
     Dosage: 6432 UNK, UNK
     Route: 042
  2. CARBOPLATIN 10 MG/ML CONCENTRATE FOR SOLUTION FOR INFUSION [Suspect]
     Dosage: 300 MG, UNK
     Route: 065
     Dates: start: 20120801
  3. CARBOPLATIN 10 MG/ML CONCENTRATE FOR SOLUTION FOR INFUSION [Suspect]
     Dosage: UNK
     Route: 042
     Dates: start: 20120822
  4. DOCETAXEL [Suspect]
     Indication: BREAST CANCER
     Dosage: 120 MG, UNK
     Route: 042
  5. DOCETAXEL [Suspect]
     Dosage: 100 MG, UNK
     Route: 042
     Dates: start: 20120801
  6. DOCETAXEL [Suspect]
     Dosage: UNK
     Route: 042
     Dates: start: 20120822
  7. HERCEPTIN [Suspect]
     Indication: BREAST CANCER
     Dosage: 400 MG, UNK
     Route: 042
  8. DOMPERIDONE [Concomitant]
  9. LANSOPRAZOLE [Concomitant]
  10. SUCRALFATE [Concomitant]
  11. THYROXINE [Concomitant]

REACTIONS (4)
  - Dehydration [Recovered/Resolved]
  - Malaise [Unknown]
  - Nausea [Recovered/Resolved]
  - Vomiting [Recovered/Resolved]
